FAERS Safety Report 18507552 (Version 1)
Quarter: 2020Q4

REPORT INFORMATION
  Report Type: Spontaneous
  Country: KR (occurrence: KR)
  Receive Date: 20201116
  Receipt Date: 20201116
  Transmission Date: 20210114
  Serious: Yes (Other)
  Sender: FDA-Public Use
  Company Number: KR-FRESENIUS KABI-FK202012082

PATIENT
  Age: 4 Year
  Sex: Male

DRUGS (3)
  1. ESMOLOL [Suspect]
     Active Substance: ESMOLOL HYDROCHLORIDE
     Indication: ATRIAL TACHYCARDIA
     Dosage: UNKNOWN
     Route: 065
  2. AMIODARONE HCL (MANUFACTURER UNKNOWN) [Suspect]
     Active Substance: AMIODARONE HYDROCHLORIDE
     Indication: ATRIAL TACHYCARDIA
     Dosage: UNKNOWN
     Route: 042
  3. DIGOXIN. [Suspect]
     Active Substance: DIGOXIN
     Indication: ATRIAL TACHYCARDIA
     Dosage: UNKNOWN
     Route: 042

REACTIONS (4)
  - Ventricular tachycardia [Recovered/Resolved]
  - Product use issue [Recovered/Resolved]
  - Torsade de pointes [Recovered/Resolved]
  - Drug ineffective [Recovered/Resolved]
